FAERS Safety Report 5197316-0 (Version None)
Quarter: 2006Q4

REPORT INFORMATION
  Report Type: 
  Country: None (occurrence: None)
  Receive Date: 20061228
  Receipt Date: 20061214
  Transmission Date: 20070319
  Serious: Yes (Hospitalization)
  Sender: FDA-Public Use
  Company Number: T200601455

PATIENT
  Age: 75 Year
  Sex: Female
  Weight: 54 kg

DRUGS (1)
  1. OPTIRAY 300 [Suspect]
     Indication: VENOGRAM
     Dosage: 40 ML, SINGLE, INTRAVENOUS
     Route: 042
     Dates: start: 20061106, end: 20061106

REACTIONS (3)
  - BRADYCARDIA [None]
  - MUSCLE CONTRACTIONS INVOLUNTARY [None]
  - MUSCLE SPASMS [None]
